FAERS Safety Report 4647838-3 (Version None)
Quarter: 2005Q2

REPORT INFORMATION
  Report Type: 
  Country: None (occurrence: None)
  Receive Date: 20050428
  Receipt Date: 20041203
  Transmission Date: 20051028
  Serious: Yes (Hospitalization)
  Sender: FDA-Public Use
  Company Number: GB-GLAXOSMITHKLINE-B0361229A

PATIENT
  Sex: Male

DRUGS (1)
  1. PAROXETINE HYDROCHLORIDE [Suspect]
     Route: 065
     Dates: start: 19990701, end: 20030501

REACTIONS (4)
  - DEPRESSION [None]
  - ILL-DEFINED DISORDER [None]
  - SOMNOLENCE [None]
  - SUICIDAL IDEATION [None]
